FAERS Safety Report 10550853 (Version 1)
Quarter: 2014Q4

REPORT INFORMATION
  Report Type: Spontaneous
  Country: US (occurrence: None)
  Receive Date: 20141028
  Receipt Date: 20141028
  Transmission Date: 20150529
  Serious: Yes (Other)
  Sender: FDA-Public Use
  Company Number: None

PATIENT
  Age: 38 Year
  Sex: Female
  Weight: 49.9 kg

DRUGS (1)
  1. AMOXICILLIN. [Suspect]
     Active Substance: AMOXICILLIN
     Indication: TOOTH EXTRACTION
     Dosage: 8HR/ 1 PILL, TWICE DAILY, TAKEN BY MOUTH
     Route: 048

REACTIONS (3)
  - Vulvovaginal pruritus [None]
  - Urine odour abnormal [None]
  - Rash [None]

NARRATIVE: CASE EVENT DATE: 20141025
